FAERS Safety Report 14275033 (Version 2)
Quarter: 2018Q4

REPORT INFORMATION
  Report Type: Spontaneous
  Country: US (occurrence: US)
  Receive Date: 20171211
  Receipt Date: 20181207
  Transmission Date: 20190204
  Serious: Yes (Disabling)
  Sender: FDA-Public Use
  Company Number: US-OTSUKA-2017_012976

PATIENT
  Age: 62 Year
  Sex: Female

DRUGS (4)
  1. ABILIFY [Suspect]
     Active Substance: ARIPIPRAZOLE
     Indication: INSOMNIA
     Dosage: UNK
     Route: 065
  2. ABILIFY [Suspect]
     Active Substance: ARIPIPRAZOLE
     Indication: BIPOLAR DISORDER
     Dosage: 20 MG, UNK
     Route: 048
     Dates: end: 2016
  3. ABILIFY [Suspect]
     Active Substance: ARIPIPRAZOLE
     Indication: MAJOR DEPRESSION
     Dosage: UNK
     Route: 065
  4. ABILIFY [Suspect]
     Active Substance: ARIPIPRAZOLE
     Indication: ANXIETY
     Dosage: UNK
     Route: 065

REACTIONS (12)
  - Psychosexual disorder [Unknown]
  - Pain [Unknown]
  - Injury [Unknown]
  - Disability [Unknown]
  - Obsessive-compulsive disorder [Unknown]
  - Gambling disorder [Recovering/Resolving]
  - Anxiety [Unknown]
  - Economic problem [Unknown]
  - Condition aggravated [Unknown]
  - Emotional distress [Unknown]
  - Impulsive behaviour [Unknown]
  - Prescribed overdose [Unknown]

NARRATIVE: CASE EVENT DATE: 200601
